FAERS Safety Report 7951307-2 (Version None)
Quarter: 2011Q4

REPORT INFORMATION
  Report Type: 
  Country: None (occurrence: None)
  Receive Date: 20111201
  Receipt Date: 20111124
  Transmission Date: 20120403
  Serious: Yes (Other)
  Sender: FDA-Public Use
  Company Number: FR-UCBSA-041910

PATIENT
  Age: 66 Year
  Sex: Female
  Weight: 53.6 kg

DRUGS (6)
  1. ZONEGRAN [Concomitant]
     Indication: POST-ANOXIC MYOCLONUS
     Route: 048
     Dates: start: 20110701
  2. CLONAZEPAM [Concomitant]
     Indication: POST-ANOXIC MYOCLONUS
     Dosage: 3.5MG DAILY
     Route: 048
     Dates: start: 20091201
  3. KEPPRA [Suspect]
     Indication: POST-ANOXIC MYOCLONUS
     Route: 048
     Dates: start: 20091201, end: 20110101
  4. KEPPRA [Suspect]
     Route: 048
     Dates: start: 20091201, end: 20110101
  5. CYMBALTA [Concomitant]
     Indication: PAIN
     Route: 048
     Dates: start: 20110815, end: 20110901
  6. DEPAKENE [Concomitant]
     Indication: POST-ANOXIC MYOCLONUS
     Dosage: 750MG IN AM+500MG IN PM
     Route: 048
     Dates: start: 20091201

REACTIONS (1)
  - MYALGIA [None]
